FAERS Safety Report 9255572 (Version 1)
Quarter: 2013Q1

REPORT INFORMATION
  Report Type: Spontaneous
  Country: US (occurrence: None)
  Receive Date: 20121203
  Receipt Date: 20121203
  Transmission Date: 20140127
  Serious: Yes (Disabling)
  Sender: FDA-Public Use
  Company Number: 1209USA007906

PATIENT
  Age: 58 Year
  Sex: Female

DRUGS (1)
  1. NASONEX [Suspect]
     Indication: RHINITIS ALLERGIC
     Dosage: 1 TO 2 SPRAYSIN EACH NOSTRIL, QD, NASAL
     Route: 045
     Dates: start: 201109, end: 201209

REACTIONS (2)
  - Glaucoma [None]
  - Glaucoma surgery [None]
